FAERS Safety Report 5474380-2 (Version None)
Quarter: 2007Q3

REPORT INFORMATION
  Report Type: 
  Country: None (occurrence: None)
  Receive Date: 20070831
  Receipt Date: 20070406
  Transmission Date: 20080115
  Serious: No
  Sender: FDA-Public Use
  Company Number: 239625

PATIENT
  Age: 65 Year
  Sex: Male
  Weight: 89.8 kg

DRUGS (2)
  1. LUCENTIS [Suspect]
     Indication: MACULAR DEGENERATION
     Dates: start: 20070405
  2. VITAMINS(VITAMINS NOS) [Concomitant]

REACTIONS (1)
  - EYE IRRITATION [None]
